FAERS Safety Report 16847280 (Version 2)
Quarter: 2019Q4

REPORT INFORMATION
  Report Type: Report from Study
  Country: US (occurrence: US)
  Receive Date: 20190924
  Receipt Date: 20191007
  Transmission Date: 20200122
  Serious: Yes (Hospitalization, Other)
  Sender: FDA-Public Use
  Company Number: US-ACTELION-A-US2019-195833

PATIENT
  Age: 73 Year
  Sex: Female

DRUGS (15)
  1. PROMETHAZINE [Concomitant]
     Active Substance: PROMETHAZINE HYDROCHLORIDE
     Dosage: 25 MG, PRN
  2. ASPIRIN. [Concomitant]
     Active Substance: ASPIRIN
     Dosage: 81 MG, QD
     Dates: start: 2018
  3. OXYGEN. [Concomitant]
     Active Substance: OXYGEN
     Dosage: 3.5 LITERS 24 HOURS A DAY
     Route: 055
  4. VITAMIN D2 [Concomitant]
     Active Substance: ERGOCALCIFEROL
     Dosage: 1.25/50,000 UNITS, ONCE WEEKLY
     Dates: start: 20190730
  5. LORAZEPAM. [Concomitant]
     Active Substance: LORAZEPAM
     Dosage: 1 MG, TID
     Dates: start: 2017
  6. MUCINEX [Concomitant]
     Active Substance: GUAIFENESIN
     Dosage: 600 UNK, TID
     Dates: start: 20190916
  7. OPSUMIT [Suspect]
     Active Substance: MACITENTAN
     Dosage: 10 MG, QD
     Route: 048
     Dates: start: 20190904
  8. OPSUMIT [Suspect]
     Active Substance: MACITENTAN
     Indication: PULMONARY ARTERIAL HYPERTENSION
     Route: 048
  9. DILTIAZEM. [Concomitant]
     Active Substance: DILTIAZEM
     Dosage: 180 MG, QD
     Dates: start: 2018
  10. SYMBICORT [Concomitant]
     Active Substance: BUDESONIDE\FORMOTEROL FUMARATE DIHYDRATE
     Dosage: 2 PUFFS DAILY AS NEEDED
     Route: 055
     Dates: start: 2017
  11. LASIX [Concomitant]
     Active Substance: FUROSEMIDE
     Dosage: 40 MG, QD
     Dates: start: 2018
  12. OXYCODONE [Concomitant]
     Active Substance: OXYCODONE
     Dosage: 10/325 MG
     Dates: start: 2017
  13. OMEPRAZOLE. [Concomitant]
     Active Substance: OMEPRAZOLE
     Dosage: 40 MG, QD
  14. LYRICA [Concomitant]
     Active Substance: PREGABALIN
     Dosage: 75 MG, TID
     Dates: start: 201908
  15. INSULIN GLARGINE [Concomitant]
     Active Substance: INSULIN GLARGINE
     Dosage: 22 IU; QHS
     Route: 058
     Dates: end: 20190916

REACTIONS (10)
  - Weight increased [Recovering/Resolving]
  - Cardiac failure congestive [Unknown]
  - Cough [Recovering/Resolving]
  - Bronchitis [Recovering/Resolving]
  - Intra-abdominal fluid collection [Recovering/Resolving]
  - Dyspnoea [Recovered/Resolved]
  - Oxygen saturation decreased [Recovered/Resolved]
  - Blood glucose decreased [Not Recovered/Not Resolved]
  - Headache [Recovered/Resolved]
  - Feeling abnormal [Recovering/Resolving]

NARRATIVE: CASE EVENT DATE: 201909
